FAERS Safety Report 16156654 (Version 4)
Quarter: 2019Q3

REPORT INFORMATION
  Report Type: Report from Study
  Country: US (occurrence: US)
  Receive Date: 20190404
  Receipt Date: 20190905
  Transmission Date: 20191004
  Serious: Yes (Other)
  Sender: FDA-Public Use
  Company Number: US-TESARO-2019-TSO00733-US

PATIENT
  Sex: Female
  Weight: 56 kg

DRUGS (6)
  1. ZEJULA [Suspect]
     Active Substance: NIRAPARIB
     Indication: MALIGNANT PERITONEAL NEOPLASM
     Dosage: 200 MG, UNK
     Route: 048
     Dates: start: 201810, end: 201811
  2. MAGNESIUM [Concomitant]
     Active Substance: MAGNESIUM
     Indication: PRODUCT USED FOR UNKNOWN INDICATION
     Dosage: UNK
  3. ZEJULA [Suspect]
     Active Substance: NIRAPARIB
     Dosage: 100 MG, QHS
     Route: 048
     Dates: start: 20181225
  4. LISINOPRIL. [Concomitant]
     Active Substance: LISINOPRIL
     Indication: PRODUCT USED FOR UNKNOWN INDICATION
     Dosage: 10 MG, QD
  5. OXYCODONE                          /00045603/ [Concomitant]
     Active Substance: OXYCODONE
     Indication: PAIN
     Dosage: 5 MG, PRN
  6. LORAZEPAM. [Concomitant]
     Active Substance: LORAZEPAM
     Indication: PRODUCT USED FOR UNKNOWN INDICATION
     Dosage: 1 MG, PRN

REACTIONS (26)
  - Eructation [Not Recovered/Not Resolved]
  - Psychomotor hyperactivity [Recovered/Resolved]
  - Restless legs syndrome [Unknown]
  - Rash [Recovered/Resolved]
  - Platelet count decreased [Not Recovered/Not Resolved]
  - Dyspepsia [Not Recovered/Not Resolved]
  - Neutrophil count decreased [Recovered/Resolved]
  - Gingival discomfort [Not Recovered/Not Resolved]
  - Stress [Unknown]
  - Hypertension [Recovered/Resolved]
  - Constipation [Recovered/Resolved]
  - Eye haemorrhage [Recovered/Resolved]
  - Arthralgia [Unknown]
  - Heart rate increased [Recovered/Resolved]
  - Insomnia [Recovered/Resolved]
  - Nasopharyngitis [Unknown]
  - Neuropathy peripheral [Not Recovered/Not Resolved]
  - Full blood count decreased [Unknown]
  - Haemoglobin decreased [Recovered/Resolved]
  - Dry mouth [Not Recovered/Not Resolved]
  - Decreased appetite [Recovered/Resolved]
  - Headache [Unknown]
  - White blood cell count decreased [Recovered/Resolved]
  - Back pain [Not Recovered/Not Resolved]
  - Weight decreased [Recovered/Resolved]
  - Nausea [Unknown]
